FAERS Safety Report 17433962 (Version 1)
Quarter: 2020Q1

REPORT INFORMATION
  Report Type: Spontaneous
  Country: US (occurrence: US)
  Receive Date: 20200219
  Receipt Date: 20200219
  Transmission Date: 20200409
  Serious: No
  Sender: FDA-Public Use
  Company Number: US-AJANTA PHARMA USA INC.-2080643

PATIENT
  Sex: Female

DRUGS (1)
  1. RISPERIDONE. [Suspect]
     Active Substance: RISPERIDONE

REACTIONS (3)
  - Nervous system disorder [Not Recovered/Not Resolved]
  - Reaction to excipient [Not Recovered/Not Resolved]
  - Mental disorder [Not Recovered/Not Resolved]
